FAERS Safety Report 21436115 (Version 1)
Quarter: 2022Q4

REPORT INFORMATION
  Report Type: Spontaneous
  Country: US (occurrence: None)
  Receive Date: 20221010
  Receipt Date: 20221010
  Transmission Date: 20230113
  Serious: No
  Sender: FDA-Public Use
  Company Number: 2022A339555

PATIENT
  Sex: Female

DRUGS (1)
  1. SYMBICORT [Suspect]
     Active Substance: BUDESONIDE\FORMOTEROL FUMARATE DIHYDRATE
     Indication: Asthma
     Dosage: DOSE: 80/4.5 2 PUFFS, FREQUENCY: TWO TIMES A DAY
     Route: 055
     Dates: start: 2017

REACTIONS (7)
  - Chest discomfort [Unknown]
  - Wheezing [Unknown]
  - Sleep disorder due to general medical condition, insomnia type [Unknown]
  - Cough [Unknown]
  - Dyspnoea [Unknown]
  - Device use issue [Unknown]
  - Device malfunction [Unknown]
